FAERS Safety Report 13933376 (Version 2)
Quarter: 2017Q4

REPORT INFORMATION
  Report Type: Spontaneous
  Country: BR (occurrence: BR)
  Receive Date: 20170904
  Receipt Date: 20171009
  Transmission Date: 20180320
  Serious: Yes (Other)
  Sender: FDA-Public Use
  Company Number: PHHY2017BR126081

PATIENT
  Sex: Male
  Weight: 27 kg

DRUGS (3)
  1. TRILEPTAL [Suspect]
     Active Substance: OXCARBAZEPINE
     Indication: PETIT MAL EPILEPSY
     Dosage: 7 ML, QD (2 ML IN MORNING AND 5 ML AT NIGHT)
     Route: 065
     Dates: start: 201704
  2. TRILEPTAL [Suspect]
     Active Substance: OXCARBAZEPINE
     Dosage: 15 ML, QD (5 ML MORNING, 5 ML AFTERNOON AND 5 ML IN EVENING)
     Route: 065
  3. GARDENAL [Concomitant]
     Active Substance: PHENOBARBITAL
     Indication: EPILEPSY
     Dosage: UNK
     Route: 065

REACTIONS (9)
  - Balance disorder [Recovering/Resolving]
  - Seizure [Recovering/Resolving]
  - Petit mal epilepsy [Recovering/Resolving]
  - Eye colour change [Recovering/Resolving]
  - Intentional self-injury [Recovering/Resolving]
  - Scratch [Recovering/Resolving]
  - Musculoskeletal disorder [Recovering/Resolving]
  - Fall [Recovering/Resolving]
  - Condition aggravated [Recovering/Resolving]
